FAERS Safety Report 16329288 (Version 2)
Quarter: 2019Q2

REPORT INFORMATION
  Report Type: Spontaneous
  Country: NL (occurrence: NL)
  Receive Date: 20190520
  Receipt Date: 20190523
  Transmission Date: 20190711
  Serious: Yes (Hospitalization, Other)
  Sender: FDA-Public Use
  Company Number: NL-LUPIN PHARMACEUTICALS INC.-2019-02965

PATIENT
  Age: 18 Year
  Sex: Male

DRUGS (3)
  1. TRAMADOL. [Suspect]
     Active Substance: TRAMADOL
     Dosage: 800 MILLIGRAM, SINGLE (MORNING BEFORE GOING TO SCHOOL)
     Route: 065
     Dates: start: 2017, end: 2017
  2. TRAMADOL. [Suspect]
     Active Substance: TRAMADOL
     Dosage: UNK UNK, QD (INCREASED IT GRADUALLY)
     Route: 065
     Dates: start: 2017, end: 2017
  3. TRAMADOL. [Suspect]
     Active Substance: TRAMADOL
     Indication: INAPPROPRIATE AFFECT
     Dosage: 100 TO 300 MG, QD
     Route: 065
     Dates: start: 2017, end: 2017

REACTIONS (12)
  - Incoherent [Recovering/Resolving]
  - Syncope [Recovered/Resolved]
  - Eye swelling [Recovered/Resolved]
  - Toxicity to various agents [Unknown]
  - Restlessness [Recovering/Resolving]
  - Depressed level of consciousness [Recovered/Resolved]
  - Intentional product misuse [Unknown]
  - Eye contusion [Recovered/Resolved]
  - Eye injury [Unknown]
  - Fall [Recovered/Resolved]
  - Loss of consciousness [Recovered/Resolved]
  - Intentional overdose [Unknown]

NARRATIVE: CASE EVENT DATE: 2017
